FAERS Safety Report 11309483 (Version 1)
Quarter: 2015Q3

REPORT INFORMATION
  Report Type: Report from Study
  Country: FR (occurrence: FR)
  Receive Date: 20150724
  Receipt Date: 20150724
  Transmission Date: 20151125
  Serious: Yes (Hospitalization, Other)
  Sender: FDA-Public Use
  Company Number: FR-GLAXOSMITHKLINE-FR2015GSK105487

PATIENT
  Age: 61 Year
  Sex: Male

DRUGS (9)
  1. KARDEGIC [Concomitant]
     Active Substance: ASPIRIN LYSINE
  2. PREVISCAN (NOS) [Concomitant]
     Active Substance: UNSPECIFIED INGREDIENT
  3. TRIATEC [Concomitant]
     Active Substance: RAMIPRIL
  4. GLUCOPHAGE [Concomitant]
     Active Substance: METFORMIN HYDROCHLORIDE
  5. PLAVIX [Concomitant]
     Active Substance: CLOPIDOGREL BISULFATE
  6. TAHOR [Concomitant]
     Active Substance: ATORVASTATIN CALCIUM
  7. OMEGA-3-ACID ETHYL ESTERS. [Suspect]
     Active Substance: OMEGA-3-ACID ETHYL ESTERS
     Indication: ISCHAEMIC HEART DISEASE PROPHYLAXIS
     Dosage: UNK
     Dates: start: 20080310, end: 20130906
  8. CARDENSIEL [Concomitant]
     Active Substance: BISOPROLOL FUMARATE
  9. DAONIL [Concomitant]
     Active Substance: GLYBURIDE

REACTIONS (1)
  - Diabetes mellitus [Unknown]

NARRATIVE: CASE EVENT DATE: 20120606
